FAERS Safety Report 22095972 (Version 1)
Quarter: 2023Q1

REPORT INFORMATION
  Report Type: Spontaneous
  Country: US (occurrence: US)
  Receive Date: 20230315
  Receipt Date: 20230315
  Transmission Date: 20230418
  Serious: No
  Sender: FDA-Public Use
  Company Number: US-ALVOGEN-2022088758

PATIENT
  Sex: Male

DRUGS (1)
  1. LENALIDOMIDE [Suspect]
     Active Substance: LENALIDOMIDE
     Indication: Plasma cell myeloma
     Dosage: EXP. DATE: 29-FEB-2024
     Route: 048
     Dates: start: 20221122, end: 2022

REACTIONS (3)
  - Product physical issue [Unknown]
  - Product contamination [Unknown]
  - Therapy interrupted [Unknown]
